FAERS Safety Report 23908728 (Version 1)
Quarter: 2024Q2

REPORT INFORMATION
  Report Type: Spontaneous
  Country: US (occurrence: US)
  Receive Date: 20240528
  Receipt Date: 20240528
  Transmission Date: 20240716
  Serious: No
  Sender: FDA-Public Use
  Company Number: US-PERRIGO-23US006536

PATIENT
  Sex: Male
  Weight: 77.098 kg

DRUGS (6)
  1. MINOXIDIL [Suspect]
     Active Substance: MINOXIDIL
     Indication: Alopecia
     Dosage: 1/4 TO 1/2 ON PALM, BID
     Route: 061
     Dates: start: 2020, end: 20230428
  2. MINOXIDIL [Suspect]
     Active Substance: MINOXIDIL
     Dosage: 1/4 TO 1/2 ON PALM, SINGLE
     Route: 061
     Dates: start: 20230523, end: 20230523
  3. ABILIFY [Concomitant]
     Active Substance: ARIPIPRAZOLE
     Indication: Depression
     Dosage: UNK
     Route: 065
     Dates: start: 2017
  4. ABILIFY [Concomitant]
     Active Substance: ARIPIPRAZOLE
     Indication: Anxiety
  5. CLONAZEPAM [Concomitant]
     Active Substance: CLONAZEPAM
     Indication: Depression
     Dosage: UNK
     Route: 065
     Dates: start: 2017
  6. CLONAZEPAM [Concomitant]
     Active Substance: CLONAZEPAM
     Indication: Anxiety

REACTIONS (5)
  - Rash [Recovered/Resolved]
  - Application site inflammation [Recovered/Resolved]
  - Application site pustules [Recovered/Resolved]
  - Application site pruritus [Recovered/Resolved]
  - Incorrect dose administered [Unknown]

NARRATIVE: CASE EVENT DATE: 20200101
